FAERS Safety Report 8100905-4 (Version None)
Quarter: 2012Q1

REPORT INFORMATION
  Report Type: 
  Country: None (occurrence: None)
  Receive Date: 20120129
  Receipt Date: 20110909
  Transmission Date: 20120608
  Serious: No
  Sender: FDA-Public Use
  Company Number: US-ABBOTT-11P-163-0853267-00

PATIENT
  Age: 48 Year
  Sex: Male

DRUGS (1)
  1. HUMIRA [Suspect]
     Indication: PSORIASIS
     Dates: start: 20110701

REACTIONS (5)
  - PSORIASIS [None]
  - FATIGUE [None]
  - MUSCLE SPASMS [None]
  - DRUG EFFECT DECREASED [None]
  - INJECTION SITE REACTION [None]
